FAERS Safety Report 7769294-9 (Version None)
Quarter: 2011Q3

REPORT INFORMATION
  Report Type: 
  Country: None (occurrence: None)
  Receive Date: 20110920
  Receipt Date: 20110913
  Transmission Date: 20111222
  Serious: Yes (Hospitalization, Other)
  Sender: FDA-Public Use
  Company Number: 2011ST000273

PATIENT
  Age: 5 Year
  Sex: Male

DRUGS (8)
  1. ETOPOSIDE [Suspect]
     Indication: ACUTE LYMPHOCYTIC LEUKAEMIA
     Dosage: 95 MG; TOTAL; IV
     Route: 042
     Dates: start: 20110712, end: 20110807
  2. IFOSFAMIDE [Suspect]
     Indication: ACUTE LYMPHOCYTIC LEUKAEMIA
     Dosage: 1710 MG;TOTAL
     Dates: start: 20110712, end: 20110807
  3. PREDNISONE [Suspect]
     Indication: ACUTE LYMPHOCYTIC LEUKAEMIA
     Dosage: 30 MG; TOTAL; PO
     Route: 048
     Dates: start: 20110712, end: 20110726
  4. VINCRISTINE SULFATE [Suspect]
     Indication: ACUTE LYMPHOCYTIC LEUKAEMIA
     Dosage: 1.3 MG;TOTAL;IV
     Route: 042
     Dates: start: 20110712, end: 20110719
  5. DAUNORUBICIN HCL [Suspect]
     Indication: ACUTE LYMPHOCYTIC LEUKAEMIA
     Dosage: 22 MG;TOTAL;IV
     Route: 042
     Dates: start: 20110712, end: 20110719
  6. ONCASPAR [Suspect]
     Indication: ACUTE LYMPHOCYTIC LEUKAEMIA
     Dosage: 2225 IU;X1;IM
     Route: 030
     Dates: end: 20110701
  7. METHOTREXATE [Suspect]
     Indication: ACUTE LYMPHOCYTIC LEUKAEMIA
     Dosage: 12 MG;TOTAL
     Dates: start: 20110712, end: 20110726
  8. DASATINIB [Suspect]
     Indication: ACUTE LYMPHOCYTIC LEUKAEMIA
     Dosage: 60 MG;TOTAL; IV
     Route: 042
     Dates: start: 20110712, end: 20110815

REACTIONS (5)
  - HYPOALBUMINAEMIA [None]
  - PYREXIA [None]
  - NEUTROPENIA [None]
  - DECREASED APPETITE [None]
  - CELLULITIS [None]
